FAERS Safety Report 5736720-6 (Version None)
Quarter: 2008Q2

REPORT INFORMATION
  Report Type: 
  Country: None (occurrence: None)
  Receive Date: 20080513
  Receipt Date: 20080506
  Transmission Date: 20081010
  Serious: Yes (Hospitalization, Other)
  Sender: FDA-Public Use
  Company Number: PHHY2008BR07495

PATIENT
  Age: 62 Year
  Sex: Male
  Weight: 62 kg

DRUGS (7)
  1. FORASEQ [Suspect]
     Dosage: 1 CAP /DAY
     Dates: start: 20070401
  2. FORMOTEROL [Concomitant]
  3. BENERVA [Concomitant]
     Dosage: 300 MG, ONCE/SINGLE
     Route: 048
     Dates: start: 20070801
  4. FLUIMUCIL [Concomitant]
     Indication: ANTICOAGULANT THERAPY
     Dosage: 600 MG, 1 SACHET A DAY
     Route: 048
  5. RANITIDINE [Concomitant]
     Indication: ANTACID THERAPY
     Dosage: 150 MG, 2 TABLETS PER DAY
     Route: 048
  6. TRYPTANOL [Concomitant]
     Indication: INSOMNIA
     Dosage: 25 MG,
     Route: 048
     Dates: start: 20080101
  7. RYTHMOL [Concomitant]
     Indication: ARRHYTHMIA
     Dosage: 300 MG, ONCE/SINGLE
     Route: 048
     Dates: start: 20080429

REACTIONS (5)
  - ARRHYTHMIA [None]
  - BLOOD URIC ACID INCREASED [None]
  - DYSPNOEA [None]
  - ELECTROCARDIOGRAM AMBULATORY ABNORMAL [None]
  - TUBERCULOSIS [None]
